FAERS Safety Report 6491091-5 (Version None)
Quarter: 2009Q4

REPORT INFORMATION
  Report Type: 
  Country: None (occurrence: None)
  Receive Date: 20091211
  Receipt Date: 20091201
  Transmission Date: 20100525
  Serious: Yes (Other)
  Sender: FDA-Public Use
  Company Number: US-PFIZER INC-2009305129

PATIENT
  Sex: Female
  Weight: 52.154 kg

DRUGS (5)
  1. XALATAN [Suspect]
     Indication: OPEN ANGLE GLAUCOMA
     Dosage: 1 GTT EACH EYE DAILY
     Route: 047
  2. TIMOLOL [Concomitant]
     Dosage: UNK
  3. CYMBALTA [Concomitant]
     Dosage: UNK
  4. CENTRUM SILVER [Concomitant]
     Dosage: UNK
  5. CALCIUM [Concomitant]
     Dosage: UNK

REACTIONS (2)
  - GLUCOSE TOLERANCE IMPAIRED [None]
  - INTRAOCULAR PRESSURE INCREASED [None]
